FAERS Safety Report 22590440 (Version 1)
Quarter: 2023Q2

REPORT INFORMATION
  Report Type: Report from Study
  Country: US (occurrence: US)
  Receive Date: 20230612
  Receipt Date: 20230612
  Transmission Date: 20230721
  Serious: Yes (Hospitalization, Other)
  Sender: FDA-Public Use
  Company Number: US-PFIZER INC-PV202300100764

PATIENT
  Age: 13 Year
  Sex: Male

DRUGS (11)
  1. TALAZOPARIB [Suspect]
     Active Substance: TALAZOPARIB
     Indication: Ewing^s sarcoma recurrent
     Dosage: 500 MCG, 2X/DAY (BID D1)
     Dates: start: 20230525, end: 20230525
  2. TALAZOPARIB [Suspect]
     Active Substance: TALAZOPARIB
     Dosage: 1000 MCG, 1X/DAY (QD 2-6 DAYS)
     Dates: start: 20230526, end: 20230530
  3. ONIVYDE [Suspect]
     Active Substance: IRINOTECAN HYDROCHLORIDE
     Indication: Ewing^s sarcoma recurrent
     Dosage: 270.9 MG, 1X/DAY
     Dates: start: 20230525, end: 20230525
  4. DIPHENHYDRAMINE [Concomitant]
     Active Substance: DIPHENHYDRAMINE
     Indication: Antiallergic therapy
     Dosage: UNK
     Route: 048
     Dates: start: 20230530
  5. LORAZEPAM [Concomitant]
     Active Substance: LORAZEPAM
     Indication: Antiemetic supportive care
     Dosage: UNK
     Route: 048
     Dates: start: 20230530
  6. LOPERAMIDE [Concomitant]
     Active Substance: LOPERAMIDE
     Indication: Antidiarrhoeal supportive care
     Dosage: UNK
     Route: 048
     Dates: start: 20230525
  7. SULFAMETHOXAZOLE\TRIMETHOPRIM [Concomitant]
     Active Substance: SULFAMETHOXAZOLE\TRIMETHOPRIM
     Indication: Prophylaxis
     Dosage: UNK
     Route: 048
     Dates: start: 20230524
  8. METHADONE [Concomitant]
     Active Substance: METHADONE HYDROCHLORIDE
     Indication: Analgesic therapy
     Dosage: UNK
     Route: 048
     Dates: start: 20230524
  9. SIMETHICONE (DIMETHICONE) [Concomitant]
     Active Substance: DIMETHICONE
     Indication: Flatulence
     Dosage: UNK
     Route: 048
     Dates: start: 20230604
  10. CEFIXIME [Concomitant]
     Active Substance: CEFIXIME
     Indication: Prophylaxis
     Dosage: UNK
     Route: 048
     Dates: start: 20230526, end: 20230604
  11. GABAPENTIN [Concomitant]
     Active Substance: GABAPENTIN
     Indication: Analgesic therapy
     Dosage: UNK
     Route: 048
     Dates: start: 20230426

REACTIONS (1)
  - Colitis [Unknown]

NARRATIVE: CASE EVENT DATE: 20230603
